FAERS Safety Report 23261807 (Version 1)
Quarter: 2023Q4

REPORT INFORMATION
  Report Type: Other
  Country: CA (occurrence: CA)
  Receive Date: 20231205
  Receipt Date: 20231205
  Transmission Date: 20240109
  Serious: Yes (Other)
  Sender: FDA-Public Use
  Company Number: CA-APOTEX-2023AP017290

PATIENT
  Age: 51 Year
  Sex: Female

DRUGS (1)
  1. OLANZAPINE [Suspect]
     Active Substance: OLANZAPINE
     Indication: Generalised anxiety disorder
     Dosage: 2.5 MILLIGRAM, QD
     Route: 065

REACTIONS (4)
  - Off label use [Unknown]
  - Tardive dyskinesia [Unknown]
  - Fatigue [Unknown]
  - Somnolence [Unknown]
